FAERS Safety Report 6966350-X (Version None)
Quarter: 2010Q3

REPORT INFORMATION
  Report Type: 
  Country: None (occurrence: None)
  Receive Date: 20100903
  Receipt Date: 20100826
  Transmission Date: 20110219
  Serious: Yes (Disabling)
  Sender: FDA-Public Use
  Company Number: US-ROCHE-721737

PATIENT
  Sex: Female
  Weight: 81.6 kg

DRUGS (24)
  1. ACTEMRA [Suspect]
     Indication: RHEUMATOID ARTHRITIS
     Route: 042
     Dates: start: 20100303
  2. ACTEMRA [Suspect]
     Route: 042
     Dates: start: 20100405
  3. ACTEMRA [Suspect]
     Dosage: DOSE INCREASED
     Route: 042
     Dates: start: 20100505
  4. ACTEMRA [Suspect]
     Route: 042
     Dates: start: 20100601
  5. ACTEMRA [Suspect]
     Route: 042
     Dates: start: 20100707, end: 20100801
  6. METHOTREXATE [Concomitant]
     Indication: RHEUMATOID ARTHRITIS
     Route: 048
     Dates: start: 20050720
  7. CYMBALTA [Concomitant]
     Indication: DEPRESSION
     Dosage: QAM
     Route: 048
  8. CYMBALTA [Concomitant]
     Route: 048
     Dates: start: 20100629
  9. FOLIC ACID [Concomitant]
     Dosage: ADJUNCT TO METHOTREXATE
     Route: 048
  10. FOLIC ACID [Concomitant]
     Route: 048
     Dates: start: 20050620
  11. SYNTHROID [Concomitant]
     Indication: HYPOTHYROIDISM
     Route: 048
  12. PRAVASTATIN [Concomitant]
     Dosage: DRUG REPORTED: PREVASTATIN
     Route: 048
  13. LISINOPRIL AND HYDROCHLOROTHIAZIDE [Concomitant]
     Indication: HYPERTENSION
     Dosage: DRUG REPORTED: LISINOPRIL-HCTZ. DOSE: 10/12.5 MG
     Route: 048
  14. PREDNISONE [Concomitant]
     Indication: RHEUMATOID ARTHRITIS
     Route: 048
     Dates: start: 20040101
  15. PREDNISONE [Concomitant]
     Dosage: DOSE INCREASED
     Route: 048
  16. NEXIUM [Concomitant]
     Route: 048
  17. CELEBREX [Concomitant]
     Indication: RHEUMATOID ARTHRITIS
     Route: 048
     Dates: start: 20040101
  18. RANITIDINE [Concomitant]
     Dosage: QAS
     Route: 048
  19. TRAZODONE HCL [Concomitant]
     Dosage: STRENGTH: 150 MG AND 100 MG
     Route: 048
  20. HYDROXYZINE [Concomitant]
     Route: 048
  21. METOPROLOL TARTRATE [Concomitant]
     Indication: HYPERTENSION
     Dosage: FREQUENCY: HS
     Route: 048
  22. ACETAMINOPHEN [Concomitant]
     Indication: PAIN
     Route: 048
  23. RHINOCORT [Concomitant]
     Dosage: ROUTE: NASAL SPRAY
     Route: 050
  24. GABAPENTIN [Concomitant]
     Dosage: DRUG REPORTED: ABAPENTIN 600 MG AND ABAPENTIN 300 MG
     Route: 048

REACTIONS (1)
  - OPTIC NEURITIS [None]
